FAERS Safety Report 7701084-5 (Version None)
Quarter: 2011Q3

REPORT INFORMATION
  Report Type: 
  Country: None (occurrence: None)
  Receive Date: 20110817
  Receipt Date: 20110801
  Transmission Date: 20111222
  Serious: Yes (Hospitalization)
  Sender: FDA-Public Use
  Company Number: 2011MA008885

PATIENT
  Age: 88 Year
  Sex: Female

DRUGS (1)
  1. LEVETIRACETAM [Suspect]
     Indication: CONVULSION
     Dosage: 500 MG;Q12H;IV
     Route: 042

REACTIONS (7)
  - TRICUSPID VALVE INCOMPETENCE [None]
  - ATRIAL FIBRILLATION [None]
  - AUTOMATISM [None]
  - SINUS BRADYCARDIA [None]
  - DISORIENTATION [None]
  - ELECTROCARDIOGRAM QT PROLONGED [None]
  - COMPLEX PARTIAL SEIZURES [None]
